FAERS Safety Report 16196717 (Version 1)
Quarter: 2019Q2

REPORT INFORMATION
  Report Type: Spontaneous
  Country: IT (occurrence: IT)
  Receive Date: 20190415
  Receipt Date: 20190415
  Transmission Date: 20190711
  Serious: Yes (Other)
  Sender: FDA-Public Use
  Company Number: IT-AMGEN-ITASP2019057154

PATIENT
  Age: 71 Year
  Sex: Female

DRUGS (5)
  1. IRINOTECAN [Suspect]
     Active Substance: IRINOTECAN
     Indication: COLON CANCER METASTATIC
     Dosage: 280 MILLIGRAM, CYCLICAL
     Route: 042
     Dates: start: 20190221, end: 20190325
  2. FLUOROURACIL. [Suspect]
     Active Substance: FLUOROURACIL
     Indication: COLON CANCER METASTATIC
     Dosage: 1800 MILLIGRAM, CYCLICAL
     Route: 042
     Dates: start: 20190221, end: 20190325
  3. BIFRIL [Concomitant]
     Active Substance: ZOFENOPRIL
     Indication: HYPERTENSION
     Dosage: 30 MILLIGRAM
     Route: 048
  4. DOXIFLURIDINE [Suspect]
     Active Substance: DOXIFLURIDINE
     Indication: COLON CANCER METASTATIC
     Dosage: 640 MILLIGRAM, CYCLICAL
     Route: 042
     Dates: start: 20190221, end: 20190325
  5. VECTIBIX [Suspect]
     Active Substance: PANITUMUMAB
     Indication: COLON CANCER METASTATIC
     Dosage: 360 MILLIGRAM, CYCLICAL
     Route: 042
     Dates: start: 20190221, end: 20190307

REACTIONS (5)
  - Dermatitis acneiform [Not Recovered/Not Resolved]
  - Dry skin [Not Recovered/Not Resolved]
  - Aphthous ulcer [Not Recovered/Not Resolved]
  - Gastrointestinal motility disorder [Not Recovered/Not Resolved]
  - Asthenia [Not Recovered/Not Resolved]

NARRATIVE: CASE EVENT DATE: 20190227
